FAERS Safety Report 8116959-5 (Version None)
Quarter: 2012Q1

REPORT INFORMATION
  Report Type: 
  Country: None (occurrence: None)
  Receive Date: 20120206
  Receipt Date: 20120203
  Transmission Date: 20120608
  Serious: Yes (Death, Hospitalization)
  Sender: FDA-Public Use
  Company Number: US-B.I. PHARMACEUTICALS,INC./RIDGEFIELD-2011-BP-28159BP

PATIENT
  Sex: Female

DRUGS (9)
  1. POTASSIUM [Concomitant]
     Route: 048
  2. SIMVASTATIN [Concomitant]
     Route: 048
  3. METOLAZONE [Concomitant]
  4. METOPROLOL [Concomitant]
     Route: 048
  5. EFFEXOR [Concomitant]
     Route: 048
  6. PRADAXA [Suspect]
     Indication: ATRIAL FIBRILLATION
     Dosage: 300 MG
     Route: 048
     Dates: start: 20111001, end: 20111204
  7. NEXIUM [Concomitant]
     Route: 048
  8. LASIX [Concomitant]
     Route: 048
  9. TRAZODONE HCL [Concomitant]
     Route: 048

REACTIONS (1)
  - SHOCK [None]
